FAERS Safety Report 9068843 (Version 1)
Quarter: 2013Q1

REPORT INFORMATION
  Report Type: Spontaneous
  Country: IR (occurrence: None)
  Receive Date: 20130122
  Receipt Date: 20130122
  Transmission Date: 20140127
  Serious: Yes (Hospitalization)
  Sender: FDA-Public Use
  Company Number: IMP_06139_2013

PATIENT
  Age: 73 Year
  Sex: Female

DRUGS (3)
  1. DIGOXIN (DIGOXIN) [Suspect]
     Indication: CARDIAC FAILURE CHRONIC
  2. DIGOXIN (DIGOXIN) [Suspect]
     Indication: ARTERIOSCLEROSIS
  3. DIGOXIN (DIGOXIN) [Suspect]
     Indication: ATRIAL FIBRILLATION

REACTIONS (11)
  - Nausea [None]
  - Vomiting [None]
  - Colour vision tests abnormal [None]
  - Cyanopsia [None]
  - Toxicity to various agents [None]
  - Abdominal pain [None]
  - Atrial fibrillation [None]
  - Heart rate decreased [None]
  - Electrocardiogram QT shortened [None]
  - Ventricular tachycardia [None]
  - Blood potassium increased [None]
